FAERS Safety Report 15796784 (Version 1)
Quarter: 2019Q1

REPORT INFORMATION
  Report Type: Report from Study
  Country: LB (occurrence: LB)
  Receive Date: 20190108
  Receipt Date: 20190108
  Transmission Date: 20190417
  Serious: Yes (Death)
  Sender: FDA-Public Use
  Company Number: LB-TAKEDA-2019MPI000365

PATIENT
  Age: 69 Year
  Sex: Male
  Weight: 74 kg

DRUGS (3)
  1. DARZALEX [Suspect]
     Active Substance: DARATUMUMAB
     Indication: PLASMA CELL MYELOMA
     Dosage: 1300 MG, 1/WEEK
     Route: 042
     Dates: start: 201806
  2. BORTEZOMIB. [Suspect]
     Active Substance: BORTEZOMIB
     Indication: PLASMA CELL MYELOMA
     Dosage: UNK
     Route: 058
  3. DARZALEX [Suspect]
     Active Substance: DARATUMUMAB
     Dosage: 1300 MG, Q2WEEKS
     Route: 042
     Dates: end: 201812

REACTIONS (4)
  - Product prescribing error [Unknown]
  - Off label use [Unknown]
  - Disease progression [Fatal]
  - Inappropriate schedule of product administration [Unknown]

NARRATIVE: CASE EVENT DATE: 201812
